FAERS Safety Report 7399970-1 (Version None)
Quarter: 2011Q2

REPORT INFORMATION
  Report Type: 
  Country: None (occurrence: None)
  Receive Date: 20110405
  Receipt Date: 20110405
  Transmission Date: 20111010
  Serious: Yes (Other)
  Sender: FDA-Public Use
  Company Number: None

PATIENT
  Age: 64 Year
  Sex: Female
  Weight: 118 kg

DRUGS (16)
  1. ATIVAN [Suspect]
     Indication: NUCLEAR MAGNETIC RESONANCE IMAGING
     Dosage: 2 MG ONE TIME DOSE
  2. ATIVAN [Suspect]
     Indication: PREMEDICATION
     Dosage: 2 MG ONE TIME DOSE
  3. CHOLECALCIFEROL [Concomitant]
  4. M.V.I. [Concomitant]
  5. OMEPRAZOLE [Concomitant]
  6. AZELASTINE HCL [Concomitant]
  7. CITRACAL D [Concomitant]
  8. TRAMADOL [Concomitant]
  9. ASPIRIN [Concomitant]
  10. IRBESARTAN [Concomitant]
  11. VIT B12 [Concomitant]
  12. NIACIN [Suspect]
     Indication: DYSLIPIDAEMIA
     Dosage: 500 MG REG RELEASE
  13. METFORMIN [Concomitant]
  14. FLUTICASONE/SALMETEROL [Concomitant]
  15. LORATADINE [Concomitant]
  16. GLIMEPIRIDE [Concomitant]

REACTIONS (6)
  - ERYTHEMA [None]
  - FEELING HOT [None]
  - DIZZINESS [None]
  - PRURITUS [None]
  - SOMNOLENCE [None]
  - RASH MACULAR [None]
